FAERS Safety Report 21656263 (Version 2)
Quarter: 2023Q1

REPORT INFORMATION
  Report Type: Spontaneous
  Country: US (occurrence: None)
  Receive Date: 20221129
  Receipt Date: 20230104
  Transmission Date: 20230418
  Serious: Yes (Hospitalization)
  Sender: FDA-Public Use
  Company Number: 2022A384861

PATIENT
  Age: 54 Year
  Sex: Male
  Weight: 80.7 kg

DRUGS (12)
  1. BRILINTA [Suspect]
     Active Substance: TICAGRELOR
     Indication: Myocardial infarction
     Route: 048
     Dates: start: 202204, end: 20221118
  2. ASPIRIN [Concomitant]
     Active Substance: ASPIRIN
     Route: 065
  3. JARDIANCE [Concomitant]
     Active Substance: EMPAGLIFLOZIN
     Dosage: TAKE 1 TABET (25 MG TOTAL) BY MOUTH 1 (ONE ) TIME EACH DAY.
     Route: 065
     Dates: start: 20221119, end: 20221128
  4. INSULIN GLARGINE [Concomitant]
     Active Substance: INSULIN GLARGINE
     Dosage: INJECT 26 UNITES UNDER THE SKIN EVERY NIGHT.
     Route: 065
     Dates: start: 20220406, end: 20221201
  5. IMDUR [Concomitant]
     Active Substance: ISOSORBIDE MONONITRATE
     Dosage: TAKE ONE TABLET (30 MG TOTAL) BY MOUTH (ONE) TIME EACH DAY. DO NOT CRUSH OR CHEW.
     Route: 065
     Dates: start: 20221006, end: 20221006
  6. ZESTRIL [Concomitant]
     Active Substance: LISINOPRIL
     Dosage: TAKE ONE TABLET (20 MG TOTAL) BY MOUTH (ONE) TIME EACH DAY.
     Route: 065
     Dates: start: 20220111
  7. TOPROL XL [Concomitant]
     Active Substance: METOPROLOL SUCCINATE
     Dosage: TAKE ONE TABLET BY MOUTH (ONE) TIME EACH DAY. DO NOT CRUSH OR CHEW.
     Route: 065
     Dates: start: 20220831
  8. EFFIENT [Concomitant]
     Active Substance: PRASUGREL HYDROCHLORIDE
     Dosage: TAKE 1 TABLET (10 MG TOTAL) BY MOUTH (ONE) TIME EACH DAY.
     Route: 065
     Dates: start: 20221119, end: 20221219
  9. RANEXA [Concomitant]
     Active Substance: RANOLAZINE
     Dosage: TAKE 1 TABLET (500 MG TOTAL) BY MOUTH IN THE MORNINGA AND 1 TABLET (500 MG TOTAL) BEFORE BEDTIME...
     Route: 065
     Dates: start: 20220804, end: 20221128
  10. LIPITOR [Concomitant]
     Active Substance: ATORVASTATIN CALCIUM
     Dosage: TAKE 1 TABLET (80 MG TOTAL) BY MOUTH 1 (ONE) TIME EACH A DAY
     Route: 065
     Dates: start: 20221010, end: 20221128
  11. NITROSTAT [Concomitant]
     Active Substance: NITROGLYCERIN
     Dosage: PLACE 1 TABLET (0.4 MG TOTAL) UNDER THE TONGUE EVERY 5 (FIVE) MINUTES IF NEEDED FOR CHEST PAIN.
     Route: 065
  12. EFFIENT [Concomitant]
     Active Substance: PRASUGREL HYDROCHLORIDE
     Route: 048

REACTIONS (4)
  - Coronary artery disease [Unknown]
  - Confusional state [Not Recovered/Not Resolved]
  - Dyslipidaemia [Unknown]
  - Drug ineffective [Unknown]

NARRATIVE: CASE EVENT DATE: 20220101
